FAERS Safety Report 5469446-7 (Version None)
Quarter: 2007Q3

REPORT INFORMATION
  Report Type: 
  Country: None (occurrence: None)
  Receive Date: 20070925
  Receipt Date: 20070925
  Transmission Date: 20080115
  Serious: Yes (Hospitalization)
  Sender: FDA-Public Use
  Company Number: None

PATIENT
  Sex: Male
  Weight: 84.3 kg

DRUGS (1)
  1. CISPLATIN [Suspect]
     Dosage: 186 MG
     Dates: end: 20070829

REACTIONS (5)
  - INCOHERENT [None]
  - LABORATORY TEST ABNORMAL [None]
  - PAIN [None]
  - PYREXIA [None]
  - VOMITING [None]
